FAERS Safety Report 4311909-1 (Version None)
Quarter: 2004Q1

REPORT INFORMATION
  Report Type: 
  Country: None (occurrence: None)
  Receive Date: 20040305
  Receipt Date: 20040226
  Transmission Date: 20041129
  Serious: Yes (Death)
  Sender: FDA-Public Use
  Company Number: PHEH2004US02403

PATIENT
  Age: 43 Year
  Sex: Male

DRUGS (5)
  1. CLOZARIL [Suspect]
     Indication: PSYCHOTIC DISORDER
     Dosage: 100MG AM+300MG QHS
     Route: 048
  2. SEROQUEL [Concomitant]
  3. DEPAKOTE [Concomitant]
  4. CELEXA [Concomitant]
  5. ATIVAN [Concomitant]

REACTIONS (1)
  - MYOCARDIAL INFARCTION [None]
